FAERS Safety Report 5421982-5 (Version None)
Quarter: 2007Q3

REPORT INFORMATION
  Report Type: 
  Country: None (occurrence: None)
  Receive Date: 20070822
  Receipt Date: 20070814
  Transmission Date: 20080115
  Serious: Yes (Other)
  Sender: FDA-Public Use
  Company Number: PHBS2007IN13589

PATIENT
  Age: 28 Year
  Sex: Male

DRUGS (8)
  1. METOPROLOL SUCCINATE [Suspect]
     Indication: TACHYCARDIA
     Dosage: 3 MG, ONCE/SINGLE
     Route: 042
  2. DIAZEPAM [Concomitant]
     Dosage: 5 MG, UNK
  3. GLYCOPYRROLATE [Concomitant]
     Dosage: 0.2 MG, UNK
     Route: 042
  4. PROPOFOL [Concomitant]
     Dosage: 110 MG, UNK
  5. PROPOFOL [Concomitant]
     Dosage: 50 MG, UNK
  6. FENTANYL [Concomitant]
     Indication: ANAESTHESIA
     Dosage: 200 UG, UNK
  7. PANCURONIUM [Concomitant]
     Indication: INTUBATION
  8. ISOFLURANE [Concomitant]
     Indication: PROPHYLAXIS
     Dosage: 3 %, UNK

REACTIONS (2)
  - BLOOD PRESSURE DECREASED [None]
  - ELECTROENCEPHALOGRAM ABNORMAL [None]
